FAERS Safety Report 4693391-8 (Version None)
Quarter: 2005Q2

REPORT INFORMATION
  Report Type: 
  Country: None (occurrence: None)
  Receive Date: 20050617
  Receipt Date: 20050609
  Transmission Date: 20051028
  Serious: Yes (Hospitalization)
  Sender: FDA-Public Use
  Company Number: DE-AMGEN-UK137871

PATIENT

DRUGS (6)
  1. NEULASTA [Suspect]
     Indication: CHEMOTHERAPY
     Dates: start: 20050521
  2. CYCLOPHOSPHAMIDE [Suspect]
     Dates: start: 20050518
  3. DOXORUBICIN HCL [Suspect]
     Dates: start: 20050518
  4. VINCRISTINE [Suspect]
     Dates: start: 20050518
  5. PREDNISOLONE [Suspect]
     Dates: start: 20050518
  6. RITUXIMAB [Suspect]
     Dates: start: 20050517

REACTIONS (3)
  - ANAEMIA [None]
  - ASTHENIA [None]
  - LEUKOPENIA [None]
